FAERS Safety Report 11684621 (Version 2)
Quarter: 2015Q4

REPORT INFORMATION
  Report Type: Spontaneous
  Country: US (occurrence: US)
  Receive Date: 20151029
  Receipt Date: 20151112
  Transmission Date: 20160304
  Serious: Yes (Other)
  Sender: FDA-Public Use
  Company Number: US-BAXTER-2015BAX057630

PATIENT
  Age: 40 Year
  Sex: Female

DRUGS (16)
  1. EPINEPHRINE. [Suspect]
     Active Substance: EPINEPHRINE
     Indication: SINUS BRADYCARDIA
     Route: 040
  2. 0.9% SODIUM CHLORIDE INJECTION [Suspect]
     Active Substance: SODIUM CHLORIDE
     Indication: PRODUCT USED FOR UNKNOWN INDICATION
     Route: 042
  3. SUCCINYLCHOLINE [Suspect]
     Active Substance: SUCCINYLCHOLINE
     Indication: ENDOTRACHEAL INTUBATION
     Route: 065
  4. LIDOCAINE HYDROCHLORIDE AND 5% DEXTROSE INJECTION, USP [Suspect]
     Active Substance: LIDOCAINE HYDROCHLORIDE
     Indication: HEART RATE INCREASED
     Route: 040
  5. LIDOCAINE AND EPINEPHRINE [Suspect]
     Active Substance: EPINEPHRINE\LIDOCAINE HYDROCHLORIDE
     Indication: LOCAL ANAESTHESIA
     Dosage: 6 CARTRIDGES OF 2% LIDOCAINE WITH 1:100000 EPINEPHRINE
     Route: 065
  6. NITROUS OXIDE. [Suspect]
     Active Substance: NITROUS OXIDE
     Indication: MAINTENANCE OF ANAESTHESIA
     Route: 065
  7. SEVOFLURANE, USP [Suspect]
     Active Substance: SEVOFLURANE
     Indication: INDUCTION OF ANAESTHESIA
     Dosage: FOR APPROXIMATELY 2 MINUTES
     Route: 055
  8. PROPOFOL. [Suspect]
     Active Substance: PROPOFOL
     Indication: INDUCTION OF ANAESTHESIA
     Route: 055
  9. BUPIVACAINE AND EPINEPHRINE [Suspect]
     Active Substance: BUPIVACAINE\EPINEPHRINE
     Indication: LOCAL ANAESTHESIA
     Dosage: 2 CARTRIDGES OF 0.5 BUPIVACAINE WITH 1: 200000 EPINEPHRINE
     Route: 065
  10. EPHEDRINE. [Suspect]
     Active Substance: EPHEDRINE
     Route: 040
  11. FENTANYL. [Suspect]
     Active Substance: FENTANYL
     Indication: INDUCTION OF ANAESTHESIA
     Route: 055
  12. LIDOCAINE AND EPINEPHRINE [Suspect]
     Active Substance: EPINEPHRINE\LIDOCAINE HYDROCHLORIDE
     Route: 040
  13. EPINEPHRINE. [Suspect]
     Active Substance: EPINEPHRINE
     Indication: PROCEDURAL HYPOTENSION
  14. FORANE [Suspect]
     Active Substance: ISOFLURANE
     Indication: MAINTENANCE OF ANAESTHESIA
     Dosage: AT 1.2 MINIMUM ALVEOLAR CONCENTRATION
     Route: 055
  15. ROCURONIUM [Suspect]
     Active Substance: ROCURONIUM BROMIDE
     Indication: ENDOTRACHEAL INTUBATION
     Route: 065
  16. EPHEDRINE. [Suspect]
     Active Substance: EPHEDRINE
     Indication: SINUS BRADYCARDIA
     Route: 042

REACTIONS (4)
  - Sinus bradycardia [Recovered/Resolved]
  - Carotid artery stenosis [Recovering/Resolving]
  - Procedural hypotension [Recovered/Resolved]
  - Ischaemic stroke [Recovering/Resolving]
